FAERS Safety Report 12477265 (Version 2)
Quarter: 2016Q2

REPORT INFORMATION
  Report Type: Spontaneous
  Country: US (occurrence: US)
  Receive Date: 20160617
  Receipt Date: 20160629
  Transmission Date: 20160815
  Serious: Yes (Other)
  Sender: FDA-Public Use
  Company Number: US-TEVA-667691USA

PATIENT
  Age: 36 Year
  Sex: Female

DRUGS (1)
  1. ZECUITY [Suspect]
     Active Substance: SUMATRIPTAN SUCCINATE
     Indication: MIGRAINE
     Route: 062
     Dates: start: 20160608, end: 20160608

REACTIONS (11)
  - Application site swelling [Unknown]
  - Incorrect product storage [Unknown]
  - Application site scab [Not Recovered/Not Resolved]
  - Application site burn [Not Recovered/Not Resolved]
  - Application site erythema [Not Recovered/Not Resolved]
  - Application site pain [Unknown]
  - Application site hypersensitivity [Not Recovered/Not Resolved]
  - Application site discolouration [Not Recovered/Not Resolved]
  - Application site irritation [Unknown]
  - Application site exfoliation [Unknown]
  - Application site warmth [Unknown]

NARRATIVE: CASE EVENT DATE: 201606
